FAERS Safety Report 14477430 (Version 1)
Quarter: 2018Q1

REPORT INFORMATION
  Report Type: Report from Study
  Country: US (occurrence: US)
  Receive Date: 20180201
  Receipt Date: 20180201
  Transmission Date: 20180509
  Serious: No
  Sender: FDA-Public Use
  Company Number: US-EXELIXIS-CABO-17011368

PATIENT
  Sex: Female

DRUGS (13)
  1. LEVOTHYROXINE. [Concomitant]
     Active Substance: LEVOTHYROXINE
  2. SIMVASTATIN. [Concomitant]
     Active Substance: SIMVASTATIN
  3. BUSPIRONE HCL [Concomitant]
     Active Substance: BUSPIRONE HYDROCHLORIDE
  4. IBUPROFEN. [Concomitant]
     Active Substance: IBUPROFEN
  5. COQ 10 [Concomitant]
     Active Substance: UBIDECARENONE
  6. CALCIUM CARBONATE. [Concomitant]
     Active Substance: CALCIUM CARBONATE
  7. COMETRIQ [Suspect]
     Active Substance: CABOZANTINIB S-MALATE
     Dosage: 120 MG, QD
     Route: 048
     Dates: start: 2017
  8. VITAMIN D [Concomitant]
     Active Substance: CHOLECALCIFEROL
  9. FOSAMAX [Concomitant]
     Active Substance: ALENDRONATE SODIUM
  10. GARLIC. [Concomitant]
     Active Substance: GARLIC
  11. METOPROLOL. [Concomitant]
     Active Substance: METOPROLOL
  12. LISINOPRIL. [Concomitant]
     Active Substance: LISINOPRIL
  13. COMETRIQ [Suspect]
     Active Substance: CABOZANTINIB S-MALATE
     Indication: THYROID CANCER
     Dosage: 140 MG, QD
     Route: 048
     Dates: start: 20170119, end: 2017

REACTIONS (1)
  - Thyroid function test abnormal [Unknown]
